FAERS Safety Report 11139646 (Version 3)
Quarter: 2015Q2

REPORT INFORMATION
  Report Type: Report from Study
  Country: BR (occurrence: BR)
  Receive Date: 20150527
  Receipt Date: 20150625
  Transmission Date: 20150821
  Serious: Yes (Hospitalization)
  Sender: FDA-Public Use
  Company Number: BR-ABBVIE-15K-020-1397290-00

PATIENT
  Age: 50 Year
  Sex: Female
  Weight: 79 kg

DRUGS (10)
  1. FLANCOX [Concomitant]
     Active Substance: ETODOLAC
     Indication: PRODUCT USED FOR UNKNOWN INDICATION
     Route: 048
     Dates: start: 2003
  2. OMEPRAZOLE. [Concomitant]
     Active Substance: OMEPRAZOLE
     Indication: GASTRIC DISORDER
     Route: 048
  3. LOSARTAN [Concomitant]
     Active Substance: LOSARTAN
     Indication: HYPERTENSION
     Route: 048
     Dates: start: 2008
  4. CORTICORTEN [Concomitant]
     Indication: ARTHRITIS
     Dosage: 2 TABLET
     Route: 048
  5. FOLIC ACID. [Concomitant]
     Active Substance: FOLIC ACID
     Indication: PRODUCT USED FOR UNKNOWN INDICATION
     Route: 048
     Dates: start: 2003
  6. VOLTAREN [Concomitant]
     Active Substance: DICLOFENAC SODIUM
     Indication: PAIN
     Route: 048
  7. MELHORAL [Concomitant]
     Active Substance: ASPIRIN\CAFFEINE
     Indication: ANTICOAGULANT THERAPY
     Route: 048
     Dates: start: 2003
  8. HUMIRA [Suspect]
     Active Substance: ADALIMUMAB
     Indication: RHEUMATOID ARTHRITIS
     Route: 058
     Dates: start: 20150401, end: 20150510
  9. NEOTAREN [Concomitant]
     Indication: RHEUMATIC FEVER
     Route: 048
     Dates: start: 2003
  10. CALCIUM [Concomitant]
     Active Substance: CALCIUM
     Indication: BONE DISORDER
     Route: 048
     Dates: start: 2003

REACTIONS (5)
  - Pruritus genital [Unknown]
  - Wound [Recovering/Resolving]
  - Gait disturbance [Recovering/Resolving]
  - Proteus infection [Recovering/Resolving]
  - Rheumatic fever [Recovering/Resolving]

NARRATIVE: CASE EVENT DATE: 2015
